FAERS Safety Report 7039488-9 (Version None)
Quarter: 2010Q4

REPORT INFORMATION
  Report Type: 
  Country: None (occurrence: None)
  Receive Date: 20101001
  Receipt Date: 20100916
  Transmission Date: 20110411
  Serious: Yes (Other)
  Sender: FDA-Public Use
  Company Number: 010925

PATIENT
  Age: 60 Year
  Sex: Male

DRUGS (8)
  1. SAMSCA [Suspect]
     Indication: HYPONATRAEMIA
     Dosage: 15 MG, SINGLE, OCCLUSIVE
     Route: 046
  2. SIMVASTATIN [Concomitant]
  3. RAMIPRIL [Concomitant]
  4. METOPROLOL SUCCINATE [Concomitant]
  5. ASPIRIN [Concomitant]
  6. DIURETICS [Concomitant]
  7. LEVETIRACETAM [Concomitant]
  8. VITAMIN B1 AND B6 (PYRIDOXINE, THIAMINE) [Concomitant]

REACTIONS (3)
  - BLOOD SODIUM INCREASED [None]
  - CONVULSION [None]
  - RESPIRATORY ARREST [None]
